FAERS Safety Report 6199017-9 (Version None)
Quarter: 2009Q2

REPORT INFORMATION
  Report Type: 
  Country: None (occurrence: None)
  Receive Date: 20090522
  Receipt Date: 20090513
  Transmission Date: 20091009
  Serious: Yes (Death, Hospitalization)
  Sender: FDA-Public Use
  Company Number: ZA-JNJFOC-20090502844

PATIENT
  Sex: Male
  Weight: 75 kg

DRUGS (7)
  1. REVELLEX [Suspect]
     Indication: CROHN'S DISEASE
     Dosage: RECEIVED 1 INFUSION FOR RESCUE THERAPY
     Route: 042
  2. ASPIRIN [Concomitant]
     Route: 048
  3. LANSOPRAZOLE [Concomitant]
     Route: 048
  4. SERETIDE [Concomitant]
     Route: 055
  5. MICARDIS [Concomitant]
  6. INDAPAMIDE [Concomitant]
  7. ELTROXIN [Concomitant]
     Route: 048

REACTIONS (2)
  - DEATH [None]
  - RENAL FAILURE [None]
